FAERS Safety Report 25182460 (Version 1)
Quarter: 2025Q2

REPORT INFORMATION
  Report Type: Spontaneous
  Country: US (occurrence: US)
  Receive Date: 20250410
  Receipt Date: 20250410
  Transmission Date: 20250716
  Serious: No
  Sender: KINIKSA PHARMACEUTICALS
  Company Number: US-Kiniksa Pharmaceuticals Ltd.-2025KPU000253

PATIENT
  Age: 56 Year
  Sex: Female

DRUGS (1)
  1. ARCALYST [Suspect]
     Active Substance: RILONACEPT
     Indication: Product used for unknown indication

REACTIONS (10)
  - Dizziness [Unknown]
  - Heart rate irregular [Unknown]
  - Hyperhidrosis [Unknown]
  - Nausea [Unknown]
  - Photopsia [Unknown]
  - Vitreous floaters [Unknown]
  - Feeling abnormal [Unknown]
  - Hypertension [Unknown]
  - Incorrect dose administered [Unknown]
  - Fatigue [Unknown]
